FAERS Safety Report 6647053-8 (Version None)
Quarter: 2010Q1

REPORT INFORMATION
  Report Type: 
  Country: None (occurrence: None)
  Receive Date: 20100323
  Receipt Date: 20100318
  Transmission Date: 20100710
  Serious: Yes (Death)
  Sender: FDA-Public Use
  Company Number: US-GILEAD-2010-0027946

PATIENT
  Sex: Male
  Weight: 55.388 kg

DRUGS (10)
  1. LETAIRIS [Suspect]
     Indication: PULMONARY ARTERIAL HYPERTENSION
     Dates: start: 20070913, end: 20100301
  2. REVATIO [Concomitant]
  3. OXYGEN [Concomitant]
  4. ASPIRIN [Concomitant]
  5. SPIRONOLACTONE [Concomitant]
  6. AZATHIOPRINE SODIUM [Concomitant]
  7. MORPHINE SULFATE [Concomitant]
  8. PROTONIX [Concomitant]
  9. LEVOTHYROXINE SODIUM [Concomitant]
  10. CALCIUM +D [Concomitant]

REACTIONS (1)
  - DEATH [None]
